FAERS Safety Report 6102111-1 (Version None)
Quarter: 2009Q1

REPORT INFORMATION
  Report Type: 
  Country: None (occurrence: None)
  Receive Date: 20090304
  Receipt Date: 20090220
  Transmission Date: 20090719
  Serious: Yes (Hospitalization)
  Sender: FDA-Public Use
  Company Number: CN-PFIZER INC-2009165084

PATIENT

DRUGS (6)
  1. SUNITINIB MALATE [Suspect]
     Indication: HEPATIC NEOPLASM MALIGNANT
     Dosage: 37.5 MG, 1X/DAY
     Route: 048
     Dates: start: 20090116
  2. SCOPOLAMINE [Concomitant]
     Indication: MOTION SICKNESS
     Dosage: 0.2 MG, 1X/DAY
     Dates: start: 20090201, end: 20090202
  3. AMOXICILLIN [Concomitant]
     Indication: COUGH
     Dosage: 0.25 G, 3X/DAY
     Dates: start: 20090119, end: 20090124
  4. ASMETON [Concomitant]
     Indication: COUGH
     Dosage: UNK
     Dates: start: 20090119, end: 20090128
  5. BIFENDATE [Concomitant]
     Indication: ASPARTATE AMINOTRANSFERASE INCREASED
     Dosage: 30 MG, 3X/DAY
     Dates: start: 20090105
  6. BIFENDATE [Concomitant]
     Indication: ALANINE AMINOTRANSFERASE INCREASED

REACTIONS (1)
  - HYPOGLYCAEMIC COMA [None]
